FAERS Safety Report 13089213 (Version 1)
Quarter: 2017Q1

REPORT INFORMATION
  Report Type: Spontaneous
  Country: US (occurrence: US)
  Receive Date: 20170105
  Receipt Date: 20170105
  Transmission Date: 20170428
  Serious: Yes (Other)
  Sender: FDA-Public Use
  Company Number: US-BRISTOL-MYERS SQUIBB COMPANY-BMS-2016-112490

PATIENT
  Age: 65 Year
  Sex: Female

DRUGS (1)
  1. SPRYCEL [Suspect]
     Active Substance: DASATINIB
     Indication: CHRONIC MYELOID LEUKAEMIA
     Dosage: 100 MG, QOD
     Route: 048
     Dates: start: 20150717, end: 20161220

REACTIONS (6)
  - Headache [Unknown]
  - Off label use [Unknown]
  - Pulmonary oedema [Unknown]
  - Dyspnoea [Unknown]
  - Chest pain [Unknown]
  - Peripheral swelling [Unknown]

NARRATIVE: CASE EVENT DATE: 20161008
